FAERS Safety Report 6763496-6 (Version None)
Quarter: 2010Q2

REPORT INFORMATION
  Report Type: 
  Country: None (occurrence: None)
  Receive Date: 20100608
  Receipt Date: 20100524
  Transmission Date: 20101027
  Serious: Yes (Death, Hospitalization)
  Sender: FDA-Public Use
  Company Number: 2010001925

PATIENT
  Age: 75 Year
  Sex: Female

DRUGS (6)
  1. TARCEVA [Suspect]
     Indication: LUNG ADENOCARCINOMA
     Dosage: (50 MG, QD), ORAL
     Route: 048
     Dates: start: 20100426, end: 20100501
  2. OXYCONTIN [Concomitant]
  3. PREDNISOLONE [Concomitant]
  4. LORCAM [Concomitant]
  5. MUCOSTA (REBAMIPIDE) [Concomitant]
  6. LOSARTAN POTASSIUM [Concomitant]

REACTIONS (12)
  - BLOOD PRESSURE DECREASED [None]
  - CARDIAC ARREST [None]
  - CONDITION AGGRAVATED [None]
  - DECREASED APPETITE [None]
  - DEPRESSED LEVEL OF CONSCIOUSNESS [None]
  - LETHARGY [None]
  - MALAISE [None]
  - METASTASES TO BONE [None]
  - MOBILITY DECREASED [None]
  - NEUTROPHIL COUNT DECREASED [None]
  - PNEUMONIA [None]
  - RESPIRATORY ARREST [None]
